FAERS Safety Report 16745822 (Version 3)
Quarter: 2019Q4

REPORT INFORMATION
  Report Type: Spontaneous
  Country: US (occurrence: US)
  Receive Date: 20190827
  Receipt Date: 20191016
  Transmission Date: 20200122
  Serious: Yes (Other)
  Sender: FDA-Public Use
  Company Number: US-ABBVIE-19K-163-2898438-00

PATIENT
  Sex: Female

DRUGS (12)
  1. BOTOX [Concomitant]
     Active Substance: ONABOTULINUMTOXINA
     Indication: MIGRAINE
     Dates: start: 20180315
  2. DEPAKOTE [Suspect]
     Active Substance: DIVALPROEX SODIUM
     Indication: PRODUCT USED FOR UNKNOWN INDICATION
     Dosage: TAKE 2 TABLETS BY ORAL ROUTE 2 TIMES A DAY FOR 30 DAYS
     Route: 048
     Dates: start: 20180828, end: 201808
  3. DEPAKOTE [Suspect]
     Active Substance: DIVALPROEX SODIUM
     Dosage: 1 TAB BY ORAL 2 TIMES A DAY FOR 90 DAYS, TAKE WITH 500MG TAB BID FOR TOTAL DOSE OF 750 MG
     Route: 048
     Dates: start: 20180829
  4. QUDEXY XR [Suspect]
     Active Substance: TOPIRAMATE
     Indication: STATUS MIGRAINOSUS
     Route: 065
     Dates: end: 20180315
  5. TOPAMAX [Concomitant]
     Active Substance: TOPIRAMATE
     Indication: PRODUCT USED FOR UNKNOWN INDICATION
     Dosage: FOR 30 DAYS
     Route: 048
     Dates: start: 20180802
  6. DULOXETINE. [Concomitant]
     Active Substance: DULOXETINE
     Indication: PRODUCT USED FOR UNKNOWN INDICATION
     Dosage: ORAL CAPSULE DELAYED RELEASE
     Route: 048
  7. DEPAKOTE [Suspect]
     Active Substance: DIVALPROEX SODIUM
     Route: 048
  8. LO LOESTRIN FE [Concomitant]
     Active Substance: ETHINYL ESTRADIOL\NORETHINDRONE ACETATE
     Indication: PRODUCT USED FOR UNKNOWN INDICATION
     Dosage: 1MG-10MCG(24)/10MCG(2) ORAL TABLET
     Route: 048
  9. CARBAMAZEPINE. [Concomitant]
     Active Substance: CARBAMAZEPINE
     Indication: PRODUCT USED FOR UNKNOWN INDICATION
  10. BUPROPION HCL [Concomitant]
     Active Substance: BUPROPION HYDROCHLORIDE
     Indication: PRODUCT USED FOR UNKNOWN INDICATION
     Dosage: ORAL TABLET EXTENDED RELEASE 12 HOURS
     Route: 048
  11. QUDEXY XR [Suspect]
     Active Substance: TOPIRAMATE
     Dosage: FOR 30 DAYS
     Route: 065
     Dates: start: 20180801
  12. DIVALPROEX [Concomitant]
     Active Substance: DIVALPROEX SODIUM
     Indication: PRODUCT USED FOR UNKNOWN INDICATION
     Dosage: ORAL TABLET EXTENDED RELEASE 24 HOURS
     Route: 048

REACTIONS (18)
  - Phonophobia [Unknown]
  - Cognitive disorder [Unknown]
  - Feeling abnormal [Unknown]
  - Weight increased [Unknown]
  - Tremor [Not Recovered/Not Resolved]
  - Arthralgia [Unknown]
  - Muscular weakness [Unknown]
  - Dysarthria [Unknown]
  - Dyskinesia [Unknown]
  - Fall [Unknown]
  - Memory impairment [Unknown]
  - Nausea [Unknown]
  - Thyroid mass [Unknown]
  - Dizziness [Not Recovered/Not Resolved]
  - Seizure [Unknown]
  - Photophobia [Unknown]
  - Headache [Recovered/Resolved]
  - Disturbance in attention [Unknown]
